FAERS Safety Report 13316484 (Version 2)
Quarter: 2017Q2

REPORT INFORMATION
  Report Type: Spontaneous
  Country: US (occurrence: US)
  Receive Date: 20170310
  Receipt Date: 20170523
  Transmission Date: 20170830
  Serious: Yes (Other)
  Sender: FDA-Public Use
  Company Number: US-UCBSA-2017009098

PATIENT
  Age: 22 Year
  Sex: Male
  Weight: 91 kg

DRUGS (6)
  1. KLONOPIN [Concomitant]
     Active Substance: CLONAZEPAM
     Indication: SEIZURE
     Dosage: UNK
     Dates: start: 201303
  2. VIMPAT [Suspect]
     Active Substance: LACOSAMIDE
     Indication: GENERALISED TONIC-CLONIC SEIZURE
     Dosage: 150 MG, 2X/DAY (BID)
     Route: 048
     Dates: start: 201512, end: 2016
  3. VIMPAT [Suspect]
     Active Substance: LACOSAMIDE
     Dosage: 200 MG, 2X/DAY (BID)
     Route: 048
     Dates: start: 2016
  4. VIMPAT [Suspect]
     Active Substance: LACOSAMIDE
     Indication: PARTIAL SEIZURES
     Dosage: 200 MG, 2X/DAY (BID)
     Route: 048
     Dates: start: 201610, end: 201610
  5. VIMPAT [Suspect]
     Active Substance: LACOSAMIDE
     Dosage: 200 MG, ONCE DAILY (QD); AT TIMES MAY NOT TAKE HIS EVENING DOSE
     Route: 048
     Dates: start: 201610, end: 201610
  6. XANAX [Concomitant]
     Active Substance: ALPRAZOLAM
     Indication: SEIZURE
     Dosage: UNK
     Dates: start: 201303

REACTIONS (3)
  - Generalised tonic-clonic seizure [Recovered/Resolved]
  - Treatment noncompliance [Unknown]
  - Drug level decreased [Unknown]

NARRATIVE: CASE EVENT DATE: 201610
